FAERS Safety Report 24018752 (Version 7)
Quarter: 2024Q4

REPORT INFORMATION
  Report Type: Spontaneous
  Country: CA (occurrence: None)
  Receive Date: 20240627
  Receipt Date: 20241113
  Transmission Date: 20250115
  Serious: Yes (Hospitalization, Other)
  Sender: ORION
  Company Number: CA-PFIZER INC-202400198743

PATIENT
  Age: 19 Year
  Sex: Male

DRUGS (4)
  1. METHOTREXATE [Suspect]
     Active Substance: METHOTREXATE
     Indication: Product used for unknown indication
     Dates: start: 20240617
  2. INFLECTRA [Suspect]
     Active Substance: INFLIXIMAB-DYYB
     Indication: Colitis ulcerative
     Dosage: W 0, 2, 6 THEN EVERY 8 WEEKS
     Dates: start: 20240618
  3. INFLECTRA [Suspect]
     Active Substance: INFLIXIMAB-DYYB
     Indication: Crohn^s disease
     Dosage: W 0, 2, 6 THEN EVERY 8 WEEKS
     Dates: start: 20240712
  4. INFLECTRA [Suspect]
     Active Substance: INFLIXIMAB-DYYB
     Dosage: 6 WEEKS 5 DAYS (WEEK 6 INDUCTION) (10 MG/KG, W 0, 2, 6 THEN EVERY 8 WEEKS)
     Dates: start: 20240828

REACTIONS (11)
  - Colectomy total [Not Recovered/Not Resolved]
  - Colostomy [Not Recovered/Not Resolved]
  - Condition aggravated [Recovering/Resolving]
  - Illness [Unknown]
  - Arthralgia [Unknown]
  - Mouth ulceration [Unknown]
  - Anal fissure [Unknown]
  - Weight decreased [Unknown]
  - Abdominal pain [Unknown]
  - Eating disorder [Unknown]
  - Mobility decreased [Unknown]

NARRATIVE: CASE EVENT DATE: 20240101
